FAERS Safety Report 5527548-0 (Version None)
Quarter: 2007Q4

REPORT INFORMATION
  Report Type: 
  Country: None (occurrence: None)
  Receive Date: 20071128
  Receipt Date: 20071120
  Transmission Date: 20080405
  Serious: Yes (Death)
  Sender: FDA-Public Use
  Company Number: JP-NOVOPROD-269716

PATIENT

DRUGS (2)
  1. NOVOSEVEN [Suspect]
     Indication: HAEMORRHAGE
     Dosage: 9.7 MG, UNK
     Route: 042
     Dates: start: 20071025, end: 20071025
  2. TRANSAMIN [Concomitant]
     Indication: HAEMOSTASIS
     Dosage: 500 MG, UNK
     Route: 042
     Dates: start: 20071025, end: 20071025

REACTIONS (1)
  - PULMONARY EMBOLISM [None]
